FAERS Safety Report 6495101-0 (Version None)
Quarter: 2009Q4

REPORT INFORMATION
  Report Type: 
  Country: None (occurrence: None)
  Receive Date: 20091214
  Receipt Date: 20090429
  Transmission Date: 20100525
  Serious: No
  Sender: FDA-Public Use
  Company Number: US-BRISTOL-MYERS SQUIBB COMPANY-14607972

PATIENT

DRUGS (2)
  1. ABILIFY [Suspect]
     Route: 065
  2. VYVANSE [Suspect]
     Route: 048

REACTIONS (1)
  - AGITATION [None]
